FAERS Safety Report 26044612 (Version 1)
Quarter: 2025Q4

REPORT INFORMATION
  Report Type: Report from Study
  Country: ZA (occurrence: ZA)
  Receive Date: 20251114
  Receipt Date: 20251114
  Transmission Date: 20260117
  Serious: Yes (Other)
  Sender: ROCHE
  Company Number: ZA-ROCHE-10000335968

PATIENT
  Age: 76 Year
  Sex: Male

DRUGS (3)
  1. VABYSMO [Suspect]
     Active Substance: FARICIMAB-SVOA
     Indication: Macular degeneration
     Route: 050
     Dates: start: 20241009
  2. VABYSMO [Suspect]
     Active Substance: FARICIMAB-SVOA
     Route: 050
     Dates: start: 20241009
  3. BEVACIZUMAB [Concomitant]
     Active Substance: BEVACIZUMAB

REACTIONS (4)
  - Retinal thickening [Unknown]
  - Optical coherence tomography abnormal [Unknown]
  - Visual acuity reduced [Unknown]
  - Off label use [Unknown]
